FAERS Safety Report 19962680 (Version 2)
Quarter: 2021Q4

REPORT INFORMATION
  Report Type: Report from Study
  Country: IT (occurrence: IT)
  Receive Date: 20211018
  Receipt Date: 20211109
  Transmission Date: 20220303
  Serious: Yes (Other)
  Sender: FDA-Public Use
  Company Number: IT-NOVARTISPH-NVSC2021IT235675

PATIENT
  Age: 83 Year
  Sex: Female

DRUGS (1)
  1. KISQALI [Suspect]
     Active Substance: RIBOCICLIB
     Indication: Product used for unknown indication
     Dosage: UNK
     Route: 065
     Dates: start: 20210619

REACTIONS (2)
  - Metastases to central nervous system [Unknown]
  - Metastases to lung [Unknown]

NARRATIVE: CASE EVENT DATE: 20211011
